FAERS Safety Report 24277801 (Version 2)
Quarter: 2024Q3

REPORT INFORMATION
  Report Type: Spontaneous
  Country: ES (occurrence: ES)
  Receive Date: 20240903
  Receipt Date: 20240912
  Transmission Date: 20241016
  Serious: Yes (Hospitalization)
  Sender: ROCHE
  Company Number: None

PATIENT
  Age: 74 Year
  Sex: Male

DRUGS (1)
  1. TECENTRIQ [Suspect]
     Active Substance: ATEZOLIZUMAB
     Indication: Bladder transitional cell carcinoma stage IV
     Dosage: 1200MG/21 DIAS
     Route: 050
     Dates: start: 20240724, end: 20240724

REACTIONS (3)
  - Immune-mediated myositis [Recovering/Resolving]
  - Muscular weakness [Recovering/Resolving]
  - Immune-mediated myocarditis [Recovering/Resolving]

NARRATIVE: CASE EVENT DATE: 20240814
